FAERS Safety Report 8186951-3 (Version None)
Quarter: 2012Q1

REPORT INFORMATION
  Report Type: 
  Country: None (occurrence: None)
  Receive Date: 20120306
  Receipt Date: 20120224
  Transmission Date: 20120608
  Serious: Yes (Other)
  Sender: FDA-Public Use
  Company Number: GB-SANOFI-AVENTIS-2012SA013665

PATIENT
  Age: 47 Year
  Sex: Female
  Weight: 78 kg

DRUGS (3)
  1. LEFLUNOMIDE [Suspect]
     Route: 065
     Dates: start: 20111011
  2. LEFLUNOMIDE [Suspect]
     Route: 065
     Dates: start: 20110215, end: 20111010
  3. TOCILIZUMAB [Suspect]
     Indication: RHEUMATOID ARTHRITIS
     Dosage: EVERY 4 WEEKS
     Route: 042
     Dates: start: 20110804

REACTIONS (3)
  - ALANINE AMINOTRANSFERASE INCREASED [None]
  - HEPATIC ENZYME INCREASED [None]
  - ASPARTATE AMINOTRANSFERASE INCREASED [None]
